FAERS Safety Report 15241693 (Version 1)
Quarter: 2018Q3

REPORT INFORMATION
  Report Type: Spontaneous
  Country: GB (occurrence: GB)
  Receive Date: 20180712
  Receipt Date: 20180712
  Transmission Date: 20181010
  Serious: Yes (Disabling)
  Sender: FDA-Public Use
  Company Number: None

PATIENT
  Age: 35 Year
  Sex: Female
  Weight: 70 kg

DRUGS (2)
  1. HYDROCORTISONE. [Suspect]
     Active Substance: HYDROCORTISONE
     Indication: RASH
     Route: 061
     Dates: start: 20140201, end: 20150815
  2. EUMOVATE [Suspect]
     Active Substance: CLOBETASONE BUTYRATE
     Indication: RASH
     Route: 061
     Dates: start: 20140501, end: 20150815

REACTIONS (5)
  - Burning sensation [None]
  - Impaired work ability [None]
  - Drug ineffective [None]
  - Rash pruritic [None]
  - Erythema [None]

NARRATIVE: CASE EVENT DATE: 20150816
